FAERS Safety Report 17459671 (Version 1)
Quarter: 2020Q1

REPORT INFORMATION
  Report Type: Spontaneous
  Country: US (occurrence: US)
  Receive Date: 20200225
  Receipt Date: 20200225
  Transmission Date: 20200409
  Serious: No
  Sender: FDA-Public Use
  Company Number: US-ROCHE-2512270

PATIENT
  Sex: Female

DRUGS (1)
  1. NUTROPIN AQ [Suspect]
     Active Substance: SOMATROPIN
     Indication: HYPOPITUITARISM
     Dosage: FORM STRENGTH: 5 MG/2 ML
     Route: 058
     Dates: start: 20191119

REACTIONS (2)
  - Drug ineffective [Unknown]
  - No adverse event [Unknown]
